FAERS Safety Report 23722187 (Version 1)
Quarter: 2024Q2

REPORT INFORMATION
  Report Type: Spontaneous
  Country: US (occurrence: None)
  Receive Date: 20240408
  Receipt Date: 20240408
  Transmission Date: 20240716
  Serious: No
  Sender: FDA-Public Use
  Company Number: None

PATIENT
  Age: 78 Year
  Sex: Male
  Weight: 93.6 kg

DRUGS (8)
  1. LEQEMBI [Suspect]
     Active Substance: LECANEMAB-IRMB
     Indication: Dementia Alzheimer^s type
     Dosage: OTHER FREQUENCY : EVERY 2 WEEKS;?
     Route: 042
     Dates: start: 20240307, end: 20240327
  2. ATORVASTATIN [Concomitant]
     Active Substance: ATORVASTATIN
  3. LISINOPRIL [Concomitant]
     Active Substance: LISINOPRIL
  4. DONEPEZIL [Concomitant]
     Active Substance: DONEPEZIL
  5. MEMANTINE [Concomitant]
     Active Substance: MEMANTINE
  6. HYDROCHLOROTHIAZIDE [Concomitant]
     Active Substance: HYDROCHLOROTHIAZIDE
  7. TOPIRAMATE [Concomitant]
     Active Substance: TOPIRAMATE
  8. LOW DOSE ASPIRIN [Concomitant]
     Active Substance: ASPIRIN

REACTIONS (3)
  - Cognitive disorder [None]
  - Amnesia [None]
  - Infusion related reaction [None]

NARRATIVE: CASE EVENT DATE: 20240404
